FAERS Safety Report 17692024 (Version 1)
Quarter: 2020Q2

REPORT INFORMATION
  Report Type: Spontaneous
  Country: US (occurrence: US)
  Receive Date: 20200422
  Receipt Date: 20200422
  Transmission Date: 20200714
  Serious: No
  Sender: FDA-Public Use
  Company Number: US-SA-2020SA105099

PATIENT
  Sex: Female

DRUGS (6)
  1. TYLENOL [Concomitant]
     Active Substance: ACETAMINOPHEN
  2. XANAX [Concomitant]
     Active Substance: ALPRAZOLAM
  3. CELEXA [CELECOXIB] [Concomitant]
     Active Substance: CELECOXIB
  4. MUPIROCIN. [Concomitant]
     Active Substance: MUPIROCIN
  5. DUPIXENT [Suspect]
     Active Substance: DUPILUMAB
     Indication: DERMATITIS ATOPIC
     Dosage: 300 MG, QOW
     Route: 058
     Dates: start: 2019
  6. DILANTIN [Concomitant]
     Active Substance: PHENYTOIN

REACTIONS (1)
  - Therapeutic response decreased [Unknown]
